FAERS Safety Report 9912631 (Version 1)
Quarter: 2014Q1

REPORT INFORMATION
  Report Type: Report from Study
  Country: US (occurrence: US)
  Receive Date: 20140220
  Receipt Date: 20140220
  Transmission Date: 20141002
  Serious: Yes (Death)
  Sender: FDA-Public Use
  Company Number: US-ROCHE-1353139

PATIENT
  Sex: Female

DRUGS (4)
  1. AVASTIN [Suspect]
     Indication: OESOPHAGEAL CARCINOMA
     Dosage: IN 100ML NORMAL SALINE
     Route: 042
  2. ONDANSETRON [Concomitant]
     Route: 042
  3. DIPHENHYDRAMINE HCL [Concomitant]
     Route: 042
  4. CARBOPLATIN [Concomitant]
     Route: 042

REACTIONS (2)
  - Disease progression [Fatal]
  - Off label use [Unknown]
